FAERS Safety Report 5620366-4 (Version None)
Quarter: 2008Q1

REPORT INFORMATION
  Report Type: 
  Country: None (occurrence: None)
  Receive Date: 20080208
  Receipt Date: 20080125
  Transmission Date: 20080703
  Serious: Yes (Hospitalization)
  Sender: FDA-Public Use
  Company Number: ES-RANBAXY-2008RR-12807

PATIENT

DRUGS (3)
  1. RISPERIDONE 1MG FILM-COATED TABLETS [Suspect]
     Indication: AKATHISIA
     Dosage: 1 MG, QD
  2. SIMVASTATINA RANBAXY 20MG COMPRIMIDOS EFG [Suspect]
     Indication: HYPERCHOLESTEROLAEMIA
     Dosage: 20 MG, QD
  3. INSULIN [Concomitant]

REACTIONS (2)
  - DRUG INTERACTION [None]
  - RHABDOMYOLYSIS [None]
